FAERS Safety Report 11464035 (Version 1)
Quarter: 2015Q3

REPORT INFORMATION
  Report Type: Spontaneous
  Country: US (occurrence: US)
  Receive Date: 20150831
  Receipt Date: 20150831
  Transmission Date: 20151125
  Serious: No
  Sender: FDA-Public Use
  Company Number: US-ELI_LILLY_AND_COMPANY-US201106000657

PATIENT
  Age: 52 Year
  Sex: Male

DRUGS (3)
  1. CYMBALTA [Suspect]
     Active Substance: DULOXETINE HYDROCHLORIDE
     Indication: DEPRESSION
     Dosage: 60 MG, QD
  2. CYMBALTA [Suspect]
     Active Substance: DULOXETINE HYDROCHLORIDE
     Dosage: 60 MG, QD
  3. CHRYSANTHEMUM PARTHENIUM [Concomitant]
     Dosage: UNK
     Dates: end: 20110531

REACTIONS (10)
  - Headache [Not Recovered/Not Resolved]
  - Anger [Recovered/Resolved]
  - Intentional product misuse [Recovered/Resolved]
  - Depression [Unknown]
  - Fall [Recovered/Resolved]
  - Back pain [Not Recovered/Not Resolved]
  - Drug effect decreased [Not Recovered/Not Resolved]
  - Intervertebral disc protrusion [Not Recovered/Not Resolved]
  - Drug dose omission [Unknown]
  - Sciatic nerve injury [Not Recovered/Not Resolved]

NARRATIVE: CASE EVENT DATE: 201103
